FAERS Safety Report 4765957-8 (Version None)
Quarter: 2005Q3

REPORT INFORMATION
  Report Type: 
  Country: None (occurrence: None)
  Receive Date: 20050912
  Receipt Date: 20050901
  Transmission Date: 20060218
  Serious: Yes (Other)
  Sender: FDA-Public Use
  Company Number: PHEH2005US09867

PATIENT
  Age: 67 Year
  Sex: Male

DRUGS (2)
  1. DIOVAN [Suspect]
     Indication: HYPERTENSION
     Dosage: UNK, BID
     Dates: start: 20010101, end: 20050101
  2. DIOVAN [Suspect]
     Dosage: UNK, QD
     Dates: start: 20050701

REACTIONS (1)
  - CARDIOMEGALY [None]
